FAERS Safety Report 9090087 (Version 1)
Quarter: 2013Q1

REPORT INFORMATION
  Report Type: Spontaneous
  Country: US (occurrence: US)
  Receive Date: 20130201
  Receipt Date: 20130201
  Transmission Date: 20140127
  Serious: No
  Sender: FDA-Public Use
  Company Number: US-PFIZER INC-2013037037

PATIENT
  Age: 56 Year
  Sex: 0

DRUGS (9)
  1. MORPHINE SULFATE [Suspect]
     Dosage: UNK
  2. SEPTRA [Suspect]
     Dosage: UNK
  3. COMPAZINE [Suspect]
     Dosage: UNK
  4. DEMEROL [Suspect]
     Dosage: UNK
  5. DILAUDID [Suspect]
     Dosage: UNK
  6. LEVAQUIN [Suspect]
     Dosage: UNK
  7. BIAXIN [Suspect]
     Dosage: UNK
  8. LIORESAL [Suspect]
     Dosage: UNK
  9. LAMICTAL [Suspect]
     Dosage: UNK

REACTIONS (1)
  - Drug hypersensitivity [Unknown]
